FAERS Safety Report 25958121 (Version 1)
Quarter: 2025Q4

REPORT INFORMATION
  Report Type: Spontaneous
  Country: JP (occurrence: JP)
  Receive Date: 20251024
  Receipt Date: 20251024
  Transmission Date: 20260118
  Serious: Yes (Hospitalization)
  Sender: JOHNSON AND JOHNSON
  Company Number: JP-NShinyaku-EVA20251408501001307081

PATIENT
  Age: 78 Year
  Sex: Female

DRUGS (1)
  1. SELEXIPAG [Suspect]
     Active Substance: SELEXIPAG
     Indication: Pulmonary arterial hypertension
     Route: 048
     Dates: start: 20250723

REACTIONS (1)
  - Physical deconditioning [Unknown]

NARRATIVE: CASE EVENT DATE: 20251008
